FAERS Safety Report 8037162-3 (Version None)
Quarter: 2012Q1

REPORT INFORMATION
  Report Type: 
  Country: None (occurrence: None)
  Receive Date: 20120111
  Receipt Date: 20120102
  Transmission Date: 20120608
  Serious: Yes (Death)
  Sender: FDA-Public Use
  Company Number: US-BAYER-2012-001855

PATIENT
  Age: 55 Year
  Sex: Female

DRUGS (13)
  1. HYDROCODONE BITARTRATE [Suspect]
  2. GABAPENTIN [Suspect]
  3. MONTELUKAST [Suspect]
  4. LISINOPRIL [Suspect]
  5. MORPHINE [Suspect]
  6. NAPROXEN SODIUM [Suspect]
  7. EZETIMIBE/SAMVASTATIN [Suspect]
  8. COCAINE [Suspect]
  9. CYCLOBENZAPRINE [Suspect]
  10. ALPRAZOLAM [Suspect]
  11. OXYCODONE HCL [Suspect]
  12. CIMETIDINE [Suspect]
  13. PRAVASTATIN [Suspect]

REACTIONS (1)
  - TOXICITY TO VARIOUS AGENTS [None]
